FAERS Safety Report 9321150 (Version 1)
Quarter: 2013Q2

REPORT INFORMATION
  Report Type: Spontaneous
  Country: US (occurrence: None)
  Receive Date: 20130528
  Receipt Date: 20130528
  Transmission Date: 20140414
  Serious: Yes (Death, Hospitalization)
  Sender: FDA-Public Use
  Company Number: 2012AP000100

PATIENT
  Age: 28 Year
  Sex: Male
  Weight: 114 kg

DRUGS (23)
  1. FERRIPROX [Suspect]
     Indication: CARDIAC SIDEROSIS
     Route: 048
     Dates: start: 20111213, end: 20111224
  2. FERRIPROX [Suspect]
     Indication: IRON OVERLOAD
     Route: 048
     Dates: start: 20111213, end: 20111224
  3. FERRIPROX [Suspect]
     Indication: HEPATIC SIDEROSIS
     Route: 048
     Dates: start: 20111213, end: 20111224
  4. DESFERAL [Concomitant]
  5. AMIODARONE [Concomitant]
  6. DIGOXIN [Concomitant]
  7. LASIX/00032601/ [Concomitant]
  8. WARFARIN [Concomitant]
  9. DIURIL/00011801/ [Concomitant]
  10. DILATIAZEM [Concomitant]
  11. ATIVAN [Concomitant]
  12. MELATONIN [Concomitant]
  13. AMBIEN [Concomitant]
  14. TYLENOL/00020001/ [Concomitant]
  15. CALCIUM CARBONATE [Concomitant]
  16. MORPHINE [Concomitant]
  17. NUBAIN [Concomitant]
  18. ZOFRAN/00955301/ [Concomitant]
  19. DOPAMINE [Concomitant]
  20. MILRINONE [Concomitant]
  21. EPINEPHRINE [Concomitant]
  22. NOREPINEPHRINE [Concomitant]
  23. HEPARIN [Concomitant]

REACTIONS (2)
  - Treatment noncompliance [None]
  - Cardiac failure congestive [None]
